FAERS Safety Report 7952928-3 (Version None)
Quarter: 2011Q4

REPORT INFORMATION
  Report Type: 
  Country: None (occurrence: None)
  Receive Date: 20111129
  Receipt Date: 20111114
  Transmission Date: 20120403
  Serious: Yes (Hospitalization)
  Sender: FDA-Public Use
  Company Number: FR-006823

PATIENT
  Sex: Male
  Weight: 13 kg

DRUGS (2)
  1. MINIRIN [Concomitant]
  2. ZOMACTON (ZOMACTON) (NOT SPECIFIED) [Suspect]
     Indication: GROWTH HORMONE DEFICIENCY
     Dosage: 0.45 MG 7X/WEEK, SUBCUTANEOUS
     Route: 058
     Dates: start: 20090629

REACTIONS (3)
  - HEADACHE [None]
  - PYREXIA [None]
  - PAIN IN EXTREMITY [None]
